FAERS Safety Report 14553432 (Version 2)
Quarter: 2018Q2

REPORT INFORMATION
  Report Type: Spontaneous
  Country: US (occurrence: US)
  Receive Date: 20180220
  Receipt Date: 20180413
  Transmission Date: 20180711
  Serious: No
  Sender: FDA-Public Use
  Company Number: US-MYLANLABS-2018M1008999

PATIENT
  Sex: Female
  Weight: 63.49 kg

DRUGS (1)
  1. LIDOCAINE MYLAN [Suspect]
     Active Substance: LIDOCAINE
     Indication: ARTHRALGIA
     Dosage: UNK
     Route: 003

REACTIONS (5)
  - Product adhesion issue [Not Recovered/Not Resolved]
  - Off label use [Unknown]
  - Therapeutic product ineffective [Unknown]
  - No adverse event [Unknown]
  - Product quality issue [Not Recovered/Not Resolved]
